FAERS Safety Report 21090243 (Version 1)
Quarter: 2022Q3

REPORT INFORMATION
  Report Type: Spontaneous
  Country: US (occurrence: US)
  Receive Date: 20220715
  Receipt Date: 20220715
  Transmission Date: 20221026
  Serious: Yes (Other)
  Sender: FDA-Public Use
  Company Number: US-SANOFI-01187137

PATIENT
  Age: 74 Year
  Sex: Male

DRUGS (1)
  1. LANTUS SOLOSTAR [Suspect]
     Active Substance: INSULIN GLARGINE
     Indication: Type 2 diabetes mellitus
     Dosage: 45 UNITS QD AND DRUG TREATMENT DURATION:37 UNITS LEFT + A NEW PEN

REACTIONS (2)
  - Cataract [Recovering/Resolving]
  - Memory impairment [Recovering/Resolving]
